FAERS Safety Report 5226031-X (Version None)
Quarter: 2007Q1

REPORT INFORMATION
  Report Type: 
  Country: None (occurrence: None)
  Receive Date: 20070129
  Receipt Date: 20070117
  Transmission Date: 20070707
  Serious: Yes (Death)
  Sender: FDA-Public Use
  Company Number: 151923ISR

PATIENT
  Age: 69 Year
  Sex: Male

DRUGS (2)
  1. CISPLATIN [Suspect]
     Indication: GASTRIC CANCER
     Dosage: (155 MG)
     Route: 042
     Dates: start: 20061117, end: 20061117
  2. CAPECITABINE [Concomitant]

REACTIONS (2)
  - LEUKOPENIA [None]
  - SEPSIS [None]
